FAERS Safety Report 8702029 (Version 2)
Quarter: 2018Q4

REPORT INFORMATION
  Report Type: Spontaneous
  Country: FR (occurrence: FR)
  Receive Date: 20120803
  Receipt Date: 20181026
  Transmission Date: 20190205
  Serious: Yes (Hospitalization, Other)
  Sender: FDA-Public Use
  Company Number: FR-SANOFI-AVENTIS-2012SA053393

PATIENT
  Age: 60 Year
  Sex: Male

DRUGS (2)
  1. VERAPAMIL HYDROCHLORIDE. [Suspect]
     Active Substance: VERAPAMIL HYDROCHLORIDE
     Indication: HYPERTENSION
     Dosage: 120 MG, QD
     Route: 048
     Dates: start: 20120613, end: 20120629
  2. KERLONE [Suspect]
     Active Substance: BETAXOLOL HYDROCHLORIDE
     Indication: HYPERTENSION
     Dosage: 20 MG,QD
     Route: 048
     Dates: start: 20120613, end: 20120629

REACTIONS (4)
  - Shock [Recovered/Resolved]
  - Acute kidney injury [Recovering/Resolving]
  - Cardiovascular disorder [Recovered/Resolved]
  - Hypotension [Recovered/Resolved]

NARRATIVE: CASE EVENT DATE: 20120613
